FAERS Safety Report 5255520-7 (Version None)
Quarter: 2007Q1

REPORT INFORMATION
  Report Type: 
  Country: None (occurrence: None)
  Receive Date: 20070305
  Receipt Date: 20070221
  Transmission Date: 20070707
  Serious: Yes (Other)
  Sender: FDA-Public Use
  Company Number: DK-SHR-DK-2007-006623

PATIENT
  Age: 74 Year
  Sex: Female

DRUGS (3)
  1. SOTALOL HYDROCHLORIDE [Suspect]
     Indication: HYPERTENSION
     Dosage: 80 MG, 2X/DAY
     Route: 048
     Dates: start: 19950101, end: 20060901
  2. CAPOTEN [Concomitant]
     Dates: start: 19970101
  3. CENTYL [Concomitant]

REACTIONS (2)
  - GANGRENE [None]
  - SKIN DISCOLOURATION [None]
